FAERS Safety Report 11526323 (Version 1)
Quarter: 2015Q3

REPORT INFORMATION
  Report Type: Spontaneous
  Country: US (occurrence: US)
  Receive Date: 20150903
  Receipt Date: 20150903
  Transmission Date: 20151125
  Serious: Yes (Other)
  Sender: FDA-Public Use
  Company Number: US-ELI_LILLY_AND_COMPANY-US201308003197

PATIENT
  Sex: Female

DRUGS (6)
  1. SKELAXIN [Interacting]
     Active Substance: METAXALONE
     Dosage: UNK, UNKNOWN
     Route: 065
  2. CYMBALTA [Interacting]
     Active Substance: DULOXETINE HYDROCHLORIDE
     Dosage: 60 MG, EACH EVENING
     Route: 065
     Dates: start: 20130723
  3. CYMBALTA [Suspect]
     Active Substance: DULOXETINE HYDROCHLORIDE
     Indication: FIBROMYALGIA
     Dosage: 30 MG, UNKNOWN
     Route: 065
     Dates: start: 20130716, end: 20130722
  4. AMBIEN [Interacting]
     Active Substance: ZOLPIDEM TARTRATE
     Dosage: UNK, UNKNOWN
     Route: 065
  5. VALIUM [Interacting]
     Active Substance: DIAZEPAM
     Dosage: UNK, UNKNOWN
     Route: 065
  6. BONIVA [Interacting]
     Active Substance: IBANDRONATE SODIUM
     Dosage: UNK, UNKNOWN
     Route: 065

REACTIONS (4)
  - Palpitations [Unknown]
  - Fatigue [Unknown]
  - Fear [Unknown]
  - Drug interaction [Unknown]

NARRATIVE: CASE EVENT DATE: 20130716
